FAERS Safety Report 7318323-5 (Version None)
Quarter: 2011Q1

REPORT INFORMATION
  Report Type: 
  Country: None (occurrence: None)
  Receive Date: 20110228
  Receipt Date: 20110218
  Transmission Date: 20110831
  Serious: No
  Sender: FDA-Public Use
  Company Number: US-BIOGENIDEC-2011BI006703

PATIENT
  Age: 46 Year
  Sex: Male

DRUGS (2)
  1. AVONEX [Suspect]
     Indication: MULTIPLE SCLEROSIS
     Route: 030
     Dates: start: 20081201
  2. AVONEX [Suspect]
     Route: 030
     Dates: start: 20091123

REACTIONS (5)
  - MULTIPLE SCLEROSIS RELAPSE [None]
  - INSOMNIA [None]
  - ASTHENIA [None]
  - HEMIPARESIS [None]
  - INFLUENZA LIKE ILLNESS [None]
